FAERS Safety Report 18273779 (Version 7)
Quarter: 2020Q4

REPORT INFORMATION
  Report Type: Report from Study
  Country: CA (occurrence: CA)
  Receive Date: 20200916
  Receipt Date: 20201216
  Transmission Date: 20210113
  Serious: Yes (Hospitalization, Other)
  Sender: FDA-Public Use
  Company Number: CA-JNJFOC-20200910471

PATIENT
  Age: 83 Year
  Sex: Female

DRUGS (1)
  1. REMICADE [Suspect]
     Active Substance: INFLIXIMAB
     Indication: COLITIS ULCERATIVE
     Dosage: FREQUENCY ALSO REPORTED AS 1 PER 56 DAYS
     Route: 042
     Dates: start: 20141103

REACTIONS (11)
  - Asthenia [Unknown]
  - Malignant polyp [Unknown]
  - Colitis ulcerative [Recovering/Resolving]
  - Infection [Recovered/Resolved]
  - Headache [Unknown]
  - Muscle spasms [Not Recovered/Not Resolved]
  - Frustration tolerance decreased [Unknown]
  - Intestinal polyp [Unknown]
  - Weight decreased [Unknown]
  - Insomnia [Not Recovered/Not Resolved]
  - Drug ineffective [Unknown]

NARRATIVE: CASE EVENT DATE: 2020
